FAERS Safety Report 5504741-4 (Version None)
Quarter: 2007Q4

REPORT INFORMATION
  Report Type: 
  Country: None (occurrence: None)
  Receive Date: 20071031
  Receipt Date: 20071019
  Transmission Date: 20080405
  Serious: Yes (Other)
  Sender: FDA-Public Use
  Company Number: 2007333531

PATIENT
  Age: 47 Year
  Sex: Female

DRUGS (2)
  1. DIPHENHYDRAMINE HCL [Suspect]
     Dosage: 1 DF (1 IN 1 D), ORAL; 1 DF (60 IN 1 D), ORAL
     Route: 048
  2. DIPHENHYDRAMINE HCL [Suspect]
     Dosage: 1 DF (1 IN 1 D), ORAL; 1 DF (60 IN 1 D), ORAL
     Route: 048
     Dates: start: 20010101

REACTIONS (10)
  - AMNESIA [None]
  - BRONCHITIS [None]
  - COGNITIVE DISORDER [None]
  - COLOUR BLINDNESS [None]
  - INDIFFERENCE [None]
  - LOWER RESPIRATORY TRACT INFECTION [None]
  - MYDRIASIS [None]
  - SLUGGISHNESS [None]
  - SPEECH DISORDER [None]
  - THINKING ABNORMAL [None]
